FAERS Safety Report 9098392 (Version 2)
Quarter: 2013Q1

REPORT INFORMATION
  Report Type: Spontaneous
  Country: CL (occurrence: CL)
  Receive Date: 20130213
  Receipt Date: 20130319
  Transmission Date: 20140127
  Serious: Yes (Other)
  Sender: FDA-Public Use
  Company Number: PHHY2013CL013606

PATIENT
  Age: 69 Year
  Sex: Female

DRUGS (10)
  1. GALVUS MET [Suspect]
     Indication: DIABETES MELLITUS
     Dosage: 1 DF (850 MG MET AND 50 MG VILDA), BID
     Route: 048
  2. TAREG D [Suspect]
     Indication: CARDIAC DISORDER
     Dosage: 1 DF (80 MG VALS AND 12.5 MG HYDRO), QD
     Route: 048
     Dates: start: 2000
  3. ATORVASTATIN [Concomitant]
     Indication: BLOOD CHOLESTEROL
     Dosage: 10 MG, QD
     Route: 048
     Dates: start: 2001
  4. ATLANSIL//AMIODARONE [Concomitant]
     Indication: ARRHYTHMIA
     Dosage: 200 MG, QD
     Route: 048
     Dates: start: 2001
  5. EUTIROX [Concomitant]
     Dosage: 25 UG, QD
     Route: 048
     Dates: start: 2001
  6. PRADAXA [Concomitant]
     Indication: ANTICOAGULANT THERAPY
     Dosage: 150 MG, BID
     Route: 048
  7. ELCAL D [Concomitant]
     Indication: ARTHRITIS
     Dosage: 150 MG, QD
     Route: 048
  8. GLUCOSAMINE [Concomitant]
     Indication: ARTHRITIS
     Dosage: 1500 MG, BID
     Route: 048
  9. PIASCLEDINE                        /01305801/ [Concomitant]
     Indication: ARTHRITIS
     Dosage: UNK UKN, QD
     Route: 048
  10. TOCOPHEROL [Concomitant]
     Dosage: 10 MG, QD
     Route: 048

REACTIONS (6)
  - Glaucoma [Recovering/Resolving]
  - Eye pain [Recovering/Resolving]
  - Visual impairment [Not Recovered/Not Resolved]
  - Paraesthesia [Not Recovered/Not Resolved]
  - Sensory disturbance [Not Recovered/Not Resolved]
  - Blood glucose increased [Unknown]
